FAERS Safety Report 10906233 (Version 2)
Quarter: 2015Q1

REPORT INFORMATION
  Report Type: Spontaneous
  Country: US (occurrence: US)
  Receive Date: 20150311
  Receipt Date: 20150312
  Transmission Date: 20150721
  Serious: No
  Sender: FDA-Public Use
  Company Number: US-GLAXOSMITHKLINE-US2014010427

PATIENT
  Age: 72 Year
  Sex: Female

DRUGS (4)
  1. VENTOLIN HFA [Suspect]
     Active Substance: ALBUTEROL SULFATE
     Indication: CHRONIC OBSTRUCTIVE PULMONARY DISEASE
     Dosage: 2 PUFF(S), QID
     Route: 055
     Dates: start: 2012
  2. FLUTICASONE PROPIONATE. [Concomitant]
     Active Substance: FLUTICASONE PROPIONATE
  3. PREDNISONE. [Concomitant]
     Active Substance: PREDNISONE
  4. ADVAIR DISKUS [Concomitant]
     Active Substance: FLUTICASONE PROPIONATE\SALMETEROL XINAFOATE

REACTIONS (8)
  - Cough [Recovering/Resolving]
  - Bronchitis [Recovering/Resolving]
  - Blood calcium decreased [Unknown]
  - Vitamin D decreased [Unknown]
  - Oropharyngeal pain [Recovering/Resolving]
  - Hepatic steatosis [Unknown]
  - Rhinorrhoea [Recovering/Resolving]
  - Device misuse [Unknown]

NARRATIVE: CASE EVENT DATE: 2013
